FAERS Safety Report 7439197-8 (Version None)
Quarter: 2011Q2

REPORT INFORMATION
  Report Type: 
  Country: None (occurrence: None)
  Receive Date: 20110427
  Receipt Date: 20110418
  Transmission Date: 20111010
  Serious: Yes (Death, Other)
  Sender: FDA-Public Use
  Company Number: US-JNJFOC-20101004202

PATIENT
  Sex: Female

DRUGS (2)
  1. ORTHO EVRA [Suspect]
     Route: 062
  2. ORTHO EVRA [Suspect]
     Indication: CONTRACEPTION
     Route: 062

REACTIONS (16)
  - PNEUMONIA [None]
  - URINARY TRACT INFECTION [None]
  - RESPIRATORY DISTRESS [None]
  - HYPOAESTHESIA [None]
  - CHEST PAIN [None]
  - HEADACHE [None]
  - CEREBROVASCULAR SPASM [None]
  - THROMBOSIS [None]
  - PULMONARY EMBOLISM [None]
  - ISCHAEMIC STROKE [None]
  - DECUBITUS ULCER [None]
  - OSTEOMYELITIS [None]
  - CONVULSION [None]
  - DYSPNOEA [None]
  - HAEMORRHAGIC STROKE [None]
  - ANEURYSM RUPTURED [None]
